FAERS Safety Report 9222814 (Version 1)
Quarter: 2013Q2

REPORT INFORMATION
  Report Type: Spontaneous
  Country: ZA (occurrence: ZA)
  Receive Date: 20130410
  Receipt Date: 20130410
  Transmission Date: 20140414
  Serious: Yes (Other)
  Sender: FDA-Public Use
  Company Number: ZA-PFIZER INC-2013112916

PATIENT
  Age: 10 Month
  Sex: 0

DRUGS (1)
  1. ORELOX [Suspect]
     Dosage: 114 MG, DAILY
     Route: 048
     Dates: start: 20130330, end: 20130402

REACTIONS (3)
  - Overdose [Unknown]
  - Inappropriate schedule of drug administration [Unknown]
  - Anuria [Unknown]
